FAERS Safety Report 6976027-2 (Version None)
Quarter: 2010Q3

REPORT INFORMATION
  Report Type: 
  Country: None (occurrence: None)
  Receive Date: 20100910
  Receipt Date: 20100906
  Transmission Date: 20110219
  Serious: Yes (Life-Threatening)
  Sender: FDA-Public Use
  Company Number: TW-ASTRAZENECA-2010SE41841

PATIENT
  Age: 24 Year
  Sex: Male

DRUGS (1)
  1. PROPOFOL [Suspect]
     Indication: SEDATION
     Dosage: 3.0-5.8 MG/KG/HR
     Route: 042

REACTIONS (4)
  - BRADYARRHYTHMIA [None]
  - CARDIAC ARREST [None]
  - HEART INJURY [None]
  - PROPOFOL INFUSION SYNDROME [None]
